FAERS Safety Report 5573578-2 (Version None)
Quarter: 2007Q4

REPORT INFORMATION
  Report Type: 
  Country: None (occurrence: None)
  Receive Date: 20071226
  Receipt Date: 20071217
  Transmission Date: 20080405
  Serious: Yes (Hospitalization, Other)
  Sender: FDA-Public Use
  Company Number: US-JNJFOC-20071204391

PATIENT
  Sex: Female
  Weight: 83.92 kg

DRUGS (7)
  1. REMICADE [Suspect]
     Indication: RHEUMATOID ARTHRITIS
     Route: 042
  2. CYMBALTA [Concomitant]
  3. ULTRAM [Concomitant]
  4. HYDROCHLOROTHIAZIDE [Concomitant]
  5. ATENOLOL [Concomitant]
  6. ACIPHEX [Concomitant]
  7. LYRICA [Concomitant]

REACTIONS (4)
  - ATRIAL FIBRILLATION [None]
  - HEADACHE [None]
  - PNEUMONIA [None]
  - SEPSIS [None]
